FAERS Safety Report 19459293 (Version 2)
Quarter: 2022Q3

REPORT INFORMATION
  Report Type: Report from Study
  Country: US (occurrence: US)
  Receive Date: 20210624
  Receipt Date: 20220928
  Transmission Date: 20221026
  Serious: No
  Sender: FDA-Public Use
  Company Number: US-NOVARTISTESTPH-NVSC2021US131243

PATIENT
  Sex: Female

DRUGS (1)
  1. COSENTYX [Suspect]
     Active Substance: SECUKINUMAB
     Indication: Psoriasis
     Dosage: 300 MG, QMO
     Route: 058

REACTIONS (4)
  - Drug intolerance [Unknown]
  - Drug hypersensitivity [Unknown]
  - Contraindication to medical treatment [Unknown]
  - Drug ineffective [Unknown]
